FAERS Safety Report 9397383 (Version 1)
Quarter: 2013Q3

REPORT INFORMATION
  Report Type: Spontaneous
  Country: US (occurrence: US)
  Receive Date: 20130712
  Receipt Date: 20130712
  Transmission Date: 20140515
  Serious: Yes (Hospitalization, Other)
  Sender: FDA-Public Use
  Company Number: PHHY2013US070262

PATIENT
  Age: 56 Year
  Sex: Male

DRUGS (20)
  1. CLOZAPINE [Suspect]
     Indication: PSYCHOTIC DISORDER
     Dosage: UNK (350 -450 MG/DAY)
  2. CLOZAPINE [Suspect]
     Dosage: 450 MG, QD
  3. CLOZAPINE [Suspect]
     Dosage: 300 MG, QD
  4. CLOZAPINE [Suspect]
     Dosage: UNK (350-400 MG/DAY)
     Dates: start: 2008, end: 200904
  5. CLOZAPINE [Suspect]
     Dosage: 200 MG, QD
  6. CLOZAPINE [Suspect]
     Dosage: 225 MG, QD (FOR 2 DAYS)
  7. CLOZAPINE [Suspect]
     Dosage: 250 MG, QD (FOR TWO DAYS)
  8. CLOZAPINE [Suspect]
     Dosage: 75 MG, QD
  9. CLOZAPINE [Suspect]
     Dosage: 200 MG, QD
  10. CLOZAPINE [Suspect]
     Dosage: 250 MG, QD
  11. CLOZAPINE [Suspect]
     Dosage: 200 MG, QD
  12. LITHIUM [Concomitant]
     Indication: AFFECTIVE DISORDER
     Dosage: 600 MG, HS
  13. DOXEPIN [Concomitant]
     Indication: DEPRESSION
     Dosage: UNK
  14. NORTRIPTYLINE [Concomitant]
     Indication: DEPRESSION
     Dosage: UNK
  15. BUPROPION [Concomitant]
     Indication: DEPRESSION
     Dosage: UNK
  16. SERTRALINE [Concomitant]
     Dosage: UNK
  17. ESCITALOPRAM [Concomitant]
     Dosage: UNK
  18. QUETIAPINE [Concomitant]
     Dosage: 100 MG, QD
  19. HALOPERIDOL [Concomitant]
     Indication: PSYCHOTIC DISORDER
     Dosage: UNK, DOSE GRADUALLY INCREASED
  20. VALPROIC ACID [Concomitant]

REACTIONS (23)
  - Loss of consciousness [Unknown]
  - Cerebrovascular accident [Unknown]
  - Abdominal pain [Unknown]
  - Chest pain [Unknown]
  - Malaise [Unknown]
  - Faecaloma [Unknown]
  - Pneumonia aspiration [Recovered/Resolved]
  - Oropharyngeal pain [Unknown]
  - Pneumonia [Recovering/Resolving]
  - Productive cough [Unknown]
  - Dyspnoea [Unknown]
  - Cough [Recovered/Resolved]
  - Pyrexia [Unknown]
  - Chills [Unknown]
  - Rales [Unknown]
  - Salivary hypersecretion [Recovered/Resolved]
  - Lethargy [Recovered/Resolved]
  - Choking [Recovering/Resolving]
  - Hallucination, auditory [Unknown]
  - Irritability [Unknown]
  - Constipation [Recovered/Resolved]
  - Fatigue [Recovering/Resolving]
  - Antipsychotic drug level decreased [Unknown]
